FAERS Safety Report 10057524 (Version 1)
Quarter: 2014Q2

REPORT INFORMATION
  Report Type: Spontaneous
  Country: US (occurrence: US)
  Receive Date: 20140404
  Receipt Date: 20140404
  Transmission Date: 20141212
  Serious: Yes (Hospitalization)
  Sender: FDA-Public Use
  Company Number: US-ROCHE-1376108

PATIENT
  Age: 80 Year
  Sex: Female

DRUGS (7)
  1. XOLAIR [Suspect]
     Indication: PRODUCT USED FOR UNKNOWN INDICATION
     Route: 065
  2. ADVAIR [Concomitant]
  3. SPIRIVA [Concomitant]
  4. VERAPAMIL [Concomitant]
  5. CELEXA (UNITED STATES) [Concomitant]
  6. ROPINIROLE [Concomitant]
  7. LASIX [Concomitant]

REACTIONS (4)
  - Pneumonia [Unknown]
  - Malaise [Unknown]
  - Chest discomfort [Unknown]
  - Dyspnoea [Unknown]
